FAERS Safety Report 5199527-7 (Version None)
Quarter: 2006Q4

REPORT INFORMATION
  Report Type: 
  Country: None (occurrence: None)
  Receive Date: 20061229
  Receipt Date: 20061225
  Transmission Date: 20070319
  Serious: Yes (Death)
  Sender: FDA-Public Use
  Company Number: 2006SP008895

PATIENT
  Age: 83 Year
  Sex: Male

DRUGS (2)
  1. TEMODAL [Suspect]
     Indication: GLIOBLASTOMA MULTIFORME
     Dosage: 150 MG/M2; QD; PO
     Route: 048
     Dates: start: 20060920, end: 20060924
  2. TEMODAL [Suspect]
     Indication: NEOPLASM RECURRENCE
     Dosage: 150 MG/M2; QD; PO
     Route: 048
     Dates: start: 20060920, end: 20060924

REACTIONS (6)
  - ANOREXIA [None]
  - DECREASED ACTIVITY [None]
  - FUNGUS SEROLOGY TEST POSITIVE [None]
  - INTERSTITIAL LUNG DISEASE [None]
  - ORAL INTAKE REDUCED [None]
  - RESPIRATORY FAILURE [None]
